FAERS Safety Report 20023726 (Version 5)
Quarter: 2022Q1

REPORT INFORMATION
  Report Type: Report from Study
  Country: US (occurrence: US)
  Receive Date: 20211102
  Receipt Date: 20220224
  Transmission Date: 20220423
  Serious: Yes (Hospitalization, Other)
  Sender: FDA-Public Use
  Company Number: US-MYLANLABS-2021M1070609

PATIENT
  Age: 27 Year
  Sex: Male
  Weight: 77.11 kg

DRUGS (5)
  1. CLOZAPINE [Suspect]
     Active Substance: CLOZAPINE
     Indication: Product used for unknown indication
     Dosage: UNK
     Route: 048
     Dates: end: 202003
  2. CLOZAPINE [Suspect]
     Active Substance: CLOZAPINE
     Dosage: 350 MILLIGRAM, QW
     Route: 048
     Dates: end: 20220126
  3. CLOZAPINE [Suspect]
     Active Substance: CLOZAPINE
     Dosage: UNK
     Route: 048
  4. DEPAKOTE [Concomitant]
     Active Substance: DIVALPROEX SODIUM
     Dosage: 500 MILLIGRAM (AT MORNING AND NIGHT)
  5. ATIVAN [Concomitant]
     Active Substance: LORAZEPAM
     Indication: Heart rate increased
     Dosage: UNK
     Route: 042

REACTIONS (18)
  - Eye injury [Unknown]
  - Loss of consciousness [Unknown]
  - Psychotic disorder [Unknown]
  - Long QT syndrome [Unknown]
  - Heart rate irregular [Unknown]
  - Seizure [Unknown]
  - Vomiting [Unknown]
  - Renal failure [Unknown]
  - Cardiac failure [Unknown]
  - Cardiac arrest [Unknown]
  - Hypertension [Unknown]
  - Tachycardia [Unknown]
  - Acute respiratory failure [Unknown]
  - Coma [Unknown]
  - Pneumonia aspiration [Unknown]
  - Gastrointestinal disorder [Unknown]
  - Rash [Unknown]
  - Leukocytosis [Unknown]

NARRATIVE: CASE EVENT DATE: 20200501
